APPROVED DRUG PRODUCT: PANTOPRAZOLE SODIUM
Active Ingredient: PANTOPRAZOLE SODIUM
Strength: EQ 40MG BASE
Dosage Form/Route: TABLET, DELAYED RELEASE;ORAL
Application: A090074 | Product #002 | TE Code: AB
Applicant: TORRENT PHARMACEUTICALS LTD
Approved: Jan 19, 2011 | RLD: No | RS: No | Type: RX